FAERS Safety Report 6424201-6 (Version None)
Quarter: 2009Q4

REPORT INFORMATION
  Report Type: 
  Country: None (occurrence: None)
  Receive Date: 20091102
  Receipt Date: 20091021
  Transmission Date: 20100525
  Serious: Yes (Death)
  Sender: FDA-Public Use
  Company Number: JP-PFIZER INC-2009288153

PATIENT
  Age: 58 Year
  Sex: Female
  Weight: 40.5 kg

DRUGS (4)
  1. SUNITINIB MALATE [Suspect]
     Indication: GASTROINTESTINAL STROMAL TUMOUR
     Dosage: 25 MG, 1X/DAY
     Route: 048
     Dates: start: 20080728, end: 20090305
  2. MORPHINE HYDROCHLORIDE [Concomitant]
     Route: 048
  3. VALSARTAN [Concomitant]
     Route: 048
     Dates: start: 20080804
  4. AMLODIPINE [Concomitant]
     Dosage: UNK
     Route: 048
     Dates: start: 20080812

REACTIONS (1)
  - DEATH [None]
